FAERS Safety Report 7585499-4 (Version None)
Quarter: 2011Q2

REPORT INFORMATION
  Report Type: 
  Country: None (occurrence: None)
  Receive Date: 20110531
  Receipt Date: 20100423
  Transmission Date: 20111010
  Serious: Yes (Disabling)
  Sender: FDA-Public Use
  Company Number: WAES 1004USA03927

PATIENT
  Age: 73 Year
  Sex: Female

DRUGS (1)
  1. JANUMET [Suspect]
     Indication: DIABETES MELLITUS
     Dosage: 1000MG/50 MG/BID/PO
     Route: 048
     Dates: start: 20100416

REACTIONS (1)
  - ABDOMINAL DISCOMFORT [None]
